FAERS Safety Report 25734077 (Version 2)
Quarter: 2025Q4

REPORT INFORMATION
  Report Type: Report from Study
  Country: US (occurrence: US)
  Receive Date: 20250828
  Receipt Date: 20251217
  Transmission Date: 20260117
  Serious: No
  Sender: ABBVIE
  Company Number: US-ABBVIE-6428342

PATIENT
  Sex: Female

DRUGS (8)
  1. RINVOQ [Suspect]
     Active Substance: UPADACITINIB
     Indication: Dermatitis atopic
     Route: 048
     Dates: start: 20220329
  2. RINVOQ [Suspect]
     Active Substance: UPADACITINIB
     Indication: Dermatitis atopic
     Route: 048
  3. LEVOTHYROXINE [Concomitant]
     Active Substance: LEVOTHYROXINE
     Indication: Product used for unknown indication
     Dosage: 75
  4. VITAMIN B12 [Concomitant]
     Active Substance: CYANOCOBALAMIN
     Indication: Product used for unknown indication
  5. VITAMIN D3 [Concomitant]
     Active Substance: CHOLECALCIFEROL
     Indication: Product used for unknown indication
  6. DILAUDID [Concomitant]
     Active Substance: HYDROMORPHONE HYDROCHLORIDE
     Indication: Product used for unknown indication
  7. Covid 19 vaccine [Concomitant]
     Indication: COVID-19 immunisation
  8. VARICELLA-ZOSTER VIRUS STRAIN OKA/MERCK LIVE ANTIGEN [Concomitant]
     Active Substance: VARICELLA-ZOSTER VIRUS STRAIN OKA/MERCK LIVE ANTIGEN
     Indication: Product used for unknown indication

REACTIONS (7)
  - Colitis [Recovering/Resolving]
  - Nerve injury [Unknown]
  - Fall [Recovered/Resolved]
  - Gait disturbance [Unknown]
  - Balance disorder [Unknown]
  - Face injury [Recovered/Resolved]
  - Post procedural complication [Unknown]
